FAERS Safety Report 15605702 (Version 1)
Quarter: 2018Q4

REPORT INFORMATION
  Report Type: Report from Study
  Country: IT (occurrence: IT)
  Receive Date: 20181112
  Receipt Date: 20181112
  Transmission Date: 20190205
  Serious: Yes (Other)
  Sender: FDA-Public Use
  Company Number: IT-ACCORD-091791

PATIENT
  Age: 63 Year
  Sex: Female
  Weight: 0 kg

DRUGS (2)
  1. PURINETHOL [Suspect]
     Active Substance: MERCAPTOPURINE
     Indication: LYMPHOMA
     Route: 048
     Dates: start: 20180207, end: 20180209
  2. METHOTREXATE. [Suspect]
     Active Substance: METHOTREXATE
     Indication: LYMPHOMA

REACTIONS (2)
  - Epistaxis [Unknown]
  - Thrombocytopenia [Unknown]

NARRATIVE: CASE EVENT DATE: 20180209
